FAERS Safety Report 4739908-6 (Version None)
Quarter: 2005Q3

REPORT INFORMATION
  Report Type: 
  Country: None (occurrence: None)
  Receive Date: 20050810
  Receipt Date: 20030728
  Transmission Date: 20060218
  Serious: No
  Sender: FDA-Public Use
  Company Number: US-GLAXOSMITHKLINE-A0418432A

PATIENT
  Age: 51 Year
  Sex: Female

DRUGS (6)
  1. PAXIL [Suspect]
     Indication: DEPRESSION
     Dosage: 20MG PER DAY
     Route: 048
     Dates: end: 20030725
  2. PAXIL [Suspect]
     Dosage: 40MG PER DAY
     Route: 048
     Dates: start: 20050201, end: 20050527
  3. WELLBUTRIN XL [Concomitant]
  4. CLONAZEPAM [Concomitant]
  5. HORMONE REPLACEMENT THERAPY [Concomitant]
  6. VITAMINS [Concomitant]

REACTIONS (4)
  - ASTHENIA [None]
  - CRYING [None]
  - DRUG WITHDRAWAL SYNDROME [None]
  - ILL-DEFINED DISORDER [None]
